FAERS Safety Report 22175263 (Version 1)
Quarter: 2023Q2

REPORT INFORMATION
  Report Type: Spontaneous
  Country: RO (occurrence: RO)
  Receive Date: 20230405
  Receipt Date: 20230405
  Transmission Date: 20230721
  Serious: Yes (Hospitalization, Other)
  Sender: FDA-Public Use
  Company Number: RO-Accord-307016

PATIENT
  Sex: Male
  Weight: 72 kg

DRUGS (3)
  1. CISPLATIN [Suspect]
     Active Substance: CISPLATIN
     Indication: Cholangiocarcinoma
     Dosage: DOSE, UNIT, ROUTE OF ADMINISTRATION AND FREQUENCY AS PER PROTOCOL
  2. GEMCITABINE [Concomitant]
     Active Substance: GEMCITABINE
     Dosage: AS PER PROTOCOL
     Route: 042
  3. DURVALUMAB [Concomitant]
     Active Substance: DURVALUMAB
     Dosage: AS PER PROTOCOL
     Route: 042

REACTIONS (3)
  - Anaemia [Recovering/Resolving]
  - Neutropenia [Recovering/Resolving]
  - Off label use [Unknown]

NARRATIVE: CASE EVENT DATE: 20230324
